FAERS Safety Report 19849835 (Version 1)
Quarter: 2021Q3

REPORT INFORMATION
  Report Type: Spontaneous
  Country: GB (occurrence: GB)
  Receive Date: 20210918
  Receipt Date: 20210918
  Transmission Date: 20211014
  Serious: Yes (Other)
  Sender: FDA-Public Use
  Company Number: GB-ADVANZ PHARMA-202109006147

PATIENT

DRUGS (12)
  1. METHYLPREDNISOLONE. [Suspect]
     Active Substance: METHYLPREDNISOLONE
     Indication: DIFFUSE LARGE B-CELL LYMPHOMA
     Dosage: 500 MG
     Route: 042
  2. ONDANSETRON [Concomitant]
     Active Substance: ONDANSETRON
     Indication: VOMITING
     Dosage: 4 MG, TID(AS NECESSARY)
  3. PREDNISOLONE. [Suspect]
     Active Substance: PREDNISOLONE
     Dosage: 50 MG, QD (EACH DAY IN THE MORNING FOR 14 DAY(S)) TABLET
  4. RASBURICASE [Concomitant]
     Active Substance: RASBURICASE
     Dosage: 3 MG, QD
     Route: 042
  5. MORPHINE [Concomitant]
     Active Substance: MORPHINE
     Dosage: 10 MG, QID
  6. METOCLOPRAMIDE. [Concomitant]
     Active Substance: METOCLOPRAMIDE
     Dosage: 10 MG, TID (WHEN REQUIRED)
     Route: 042
  7. OMEPRAZOLE. [Concomitant]
     Active Substance: OMEPRAZOLE
     Dosage: 40 MG, QD
  8. CALCIUM RESONIUM [Concomitant]
     Dosage: 15 G, QID
  9. MORPHINE [Concomitant]
     Active Substance: MORPHINE
     Indication: PAIN
     Dosage: 2.5 MG, QID (AS NEEDED. 10MG/5ML)
  10. ONDANSETRON [Concomitant]
     Active Substance: ONDANSETRON
     Indication: NAUSEA
  11. PARACETAMOL [Concomitant]
     Active Substance: ACETAMINOPHEN
     Dosage: 1000 MG, QID
  12. TAZOCIN [Concomitant]
     Active Substance: PIPERACILLIN SODIUM\TAZOBACTAM SODIUM
     Dosage: 4.5 G, TID

REACTIONS (2)
  - Upper gastrointestinal haemorrhage [Unknown]
  - Haematemesis [Unknown]
